FAERS Safety Report 7684864-4 (Version None)
Quarter: 2011Q3

REPORT INFORMATION
  Report Type: 
  Country: None (occurrence: None)
  Receive Date: 20110810
  Receipt Date: 20110801
  Transmission Date: 20111222
  Serious: Yes (Hospitalization, Other)
  Sender: FDA-Public Use
  Company Number: 2011SP036409

PATIENT
  Sex: Female

DRUGS (2)
  1. PEGASYS [Suspect]
     Indication: HEPATITIS C
     Dates: start: 20101001
  2. RIBAVIRIN [Suspect]
     Indication: HEPATITIS C
     Dates: start: 20101001

REACTIONS (8)
  - MALNUTRITION [None]
  - SKIN ATROPHY [None]
  - PYREXIA [None]
  - BLOOD POTASSIUM DECREASED [None]
  - WEIGHT DECREASED [None]
  - DYSPNOEA [None]
  - MUSCLE ATROPHY [None]
  - DEHYDRATION [None]
